FAERS Safety Report 4302893-5 (Version None)
Quarter: 2004Q1

REPORT INFORMATION
  Report Type: 
  Country: None (occurrence: None)
  Receive Date: 20040223
  Receipt Date: 20040223
  Transmission Date: 20041129
  Serious: Yes (Hospitalization)
  Sender: FDA-Public Use
  Company Number: None

PATIENT
  Age: 54 Year
  Sex: Female
  Weight: 67.1 kg

DRUGS (6)
  1. EVACET [Suspect]
     Indication: BREAST CANCER
     Dosage: 131 Q3WKS IV
     Route: 042
     Dates: start: 20040129, end: 20040129
  2. TAXOL [Suspect]
     Indication: BREAST CANCER
     Dosage: 310 Q3WKS IV
     Route: 042
     Dates: start: 20040129, end: 20040129
  3. DECADRON [Concomitant]
  4. ZOFRAN [Concomitant]
  5. ALLEGRA [Concomitant]
  6. PERIOCOLACE [Concomitant]

REACTIONS (4)
  - DEHYDRATION [None]
  - DIARRHOEA [None]
  - DIZZINESS [None]
  - HYPONATRAEMIA [None]
